FAERS Safety Report 5602991-X (Version None)
Quarter: 2008Q1

REPORT INFORMATION
  Report Type: 
  Country: None (occurrence: None)
  Receive Date: 20080125
  Receipt Date: 20080114
  Transmission Date: 20080703
  Serious: Yes (Disabling, Other)
  Sender: FDA-Public Use
  Company Number: GB-PFIZER INC-2003018154

PATIENT
  Age: 21 Year
  Sex: Female

DRUGS (1)
  1. DOXYCYCLINE [Suspect]
     Indication: MALARIA PROPHYLAXIS
     Dosage: DAILY DOSE:100MG-FREQ:DAILY
     Route: 048

REACTIONS (8)
  - BLINDNESS [None]
  - HEADACHE [None]
  - INTRACRANIAL PRESSURE INCREASED [None]
  - OPTIC ATROPHY [None]
  - PAPILLOEDEMA [None]
  - RETINAL EXUDATES [None]
  - VISION BLURRED [None]
  - VOMITING [None]
